FAERS Safety Report 18938312 (Version 1)
Quarter: 2021Q1

REPORT INFORMATION
  Report Type: Spontaneous
  Country: US (occurrence: US)
  Receive Date: 20210225
  Receipt Date: 20210225
  Transmission Date: 20210420
  Serious: Yes (Death)
  Sender: FDA-Public Use
  Company Number: US-PFIZER INC-2021170518

PATIENT
  Age: 11 Year
  Sex: Female

DRUGS (3)
  1. ACICLOVIR [Suspect]
     Active Substance: ACYCLOVIR
     Indication: DISSEMINATED VARICELLA ZOSTER VIRUS INFECTION
  2. ACICLOVIR [Suspect]
     Active Substance: ACYCLOVIR
     Indication: LUNG DISORDER
     Dosage: UNK
  3. METHYLPREDNISOLONE ACETATE. [Suspect]
     Active Substance: METHYLPREDNISOLONE ACETATE
     Indication: RESPIRATORY DISTRESS
     Dosage: UNK

REACTIONS (1)
  - Drug ineffective [Fatal]
